FAERS Safety Report 17782702 (Version 1)
Quarter: 2020Q2

REPORT INFORMATION
  Report Type: Spontaneous
  Country: DE (occurrence: DE)
  Receive Date: 20200514
  Receipt Date: 20200514
  Transmission Date: 20200714
  Serious: Yes (Other)
  Sender: FDA-Public Use
  Company Number: DE-TEVA-2020-DE-1233776

PATIENT
  Age: 79 Year
  Sex: Female

DRUGS (3)
  1. PREDNISOLON-RATIOPHARM 5 MG TABLETTEN [Suspect]
     Active Substance: PREDNISOLONE
     Indication: RHEUMATIC DISORDER
     Dosage: 10 MILLIGRAM DAILY;
     Route: 048
     Dates: start: 202004
  2. CANDESARTAN. [Concomitant]
     Active Substance: CANDESARTAN
  3. NOVALGIN [Concomitant]

REACTIONS (1)
  - Eye haemorrhage [Recovered/Resolved]

NARRATIVE: CASE EVENT DATE: 20200503
